FAERS Safety Report 8741548 (Version 4)
Quarter: 2013Q2

REPORT INFORMATION
  Report Type: Spontaneous
  Country: US (occurrence: US)
  Receive Date: 20120824
  Receipt Date: 20130611
  Transmission Date: 20140414
  Serious: Yes (Hospitalization)
  Sender: FDA-Public Use
  Company Number: US-ASTRAZENECA-2012SE29082

PATIENT
  Age: 45 Year
  Sex: Female
  Weight: 87.1 kg

DRUGS (13)
  1. SYMBICORT PMDI [Suspect]
     Indication: CHRONIC OBSTRUCTIVE PULMONARY DISEASE
     Dosage: 160/4.5 MCG, BID
     Route: 055
  2. NEXIUM [Suspect]
     Indication: GASTROOESOPHAGEAL REFLUX DISEASE
     Dosage: TWO A DAY
     Route: 048
  3. NEXIUM [Suspect]
     Indication: GASTROOESOPHAGEAL REFLUX DISEASE
     Route: 048
     Dates: start: 2010, end: 201304
  4. PRILOSEC [Suspect]
     Indication: GASTROOESOPHAGEAL REFLUX DISEASE
     Route: 048
     Dates: start: 2009, end: 2010
  5. LEVOTHYROXINE [Concomitant]
     Indication: THYROID DISORDER
     Route: 048
     Dates: start: 2009
  6. VICODIN [Concomitant]
     Indication: BACK PAIN
     Route: 048
     Dates: start: 2010
  7. VICODIN [Concomitant]
     Indication: PAIN IN EXTREMITY
     Route: 048
     Dates: start: 2010
  8. ASPIRIN [Concomitant]
     Indication: CARDIAC DISORDER
     Route: 048
     Dates: start: 2011
  9. PROAIR [Concomitant]
     Indication: CHRONIC OBSTRUCTIVE PULMONARY DISEASE
     Dosage: PRN
     Route: 055
  10. DUONEB [Concomitant]
     Indication: CHRONIC OBSTRUCTIVE PULMONARY DISEASE
     Dosage: 0.5/3 MG QID
     Route: 055
  11. FLEXEROL [Concomitant]
     Indication: RESTLESS LEGS SYNDROME
     Route: 048
     Dates: start: 2011
  12. LORAZEPAM [Concomitant]
     Indication: ANXIETY
     Route: 048
     Dates: start: 2012
  13. PROMETHAZINE [Concomitant]
     Indication: NAUSEA

REACTIONS (11)
  - Chest pain [Recovered/Resolved]
  - Dyspnoea [Not Recovered/Not Resolved]
  - Dyspepsia [Unknown]
  - Cardiac disorder [Unknown]
  - Malaise [Unknown]
  - Vomiting [Not Recovered/Not Resolved]
  - Gastrooesophageal reflux disease [Not Recovered/Not Resolved]
  - Drug dose omission [Unknown]
  - Intentional drug misuse [Unknown]
  - Intentional drug misuse [Unknown]
  - Drug ineffective [Recovered/Resolved]
